FAERS Safety Report 21599162 (Version 1)
Quarter: 2022Q4

REPORT INFORMATION
  Report Type: Spontaneous
  Country: CN (occurrence: CN)
  Receive Date: 20221115
  Receipt Date: 20221115
  Transmission Date: 20230113
  Serious: Yes (Other)
  Sender: FDA-Public Use
  Company Number: CN-KYOWAKIRIN-2022BKK017691

PATIENT

DRUGS (2)
  1. TOREMIFENE [Suspect]
     Active Substance: TOREMIFENE
     Indication: Breast cancer
     Dosage: 60 MG, QD
     Route: 048
     Dates: start: 20221024
  2. TOREMIFENE [Suspect]
     Active Substance: TOREMIFENE
     Indication: Endocrine disorder

REACTIONS (2)
  - White blood cell count decreased [Unknown]
  - Neutrophil percentage decreased [Unknown]

NARRATIVE: CASE EVENT DATE: 20221025
